FAERS Safety Report 24825834 (Version 1)
Quarter: 2025Q1

REPORT INFORMATION
  Report Type: Spontaneous
  Country: US (occurrence: US)
  Receive Date: 20250109
  Receipt Date: 20250109
  Transmission Date: 20250409
  Serious: No
  Sender: CHATTEM
  Company Number: US-OPELLA-2025OHG000560

PATIENT

DRUGS (7)
  1. ALLEGRA [Suspect]
     Active Substance: FEXOFENADINE HYDROCHLORIDE
     Indication: Mast cell activation syndrome
     Dosage: 2 ALLEGRA^S AT NIGHT AND IN THE MORNING, FOR A TOTAL OF 4 A DAY
     Route: 065
  2. PEPCID [Suspect]
     Active Substance: FAMOTIDINE
     Indication: Mast cell activation syndrome
     Dosage: 2 PEPCID AT NIGHT AND IN THE MORNING, FOR A TOTAL OF 4 A DAY
     Route: 065
  3. MONTELUKAST [Suspect]
     Active Substance: MONTELUKAST
     Indication: Mast cell activation syndrome
     Dosage: ONE MONTELUKAST PILL AT NIGHT
     Route: 065
  4. VITAMIN C [Suspect]
     Active Substance: ASCORBIC ACID
     Indication: Product used for unknown indication
     Route: 065
  5. QUERCETIN [Suspect]
     Active Substance: QUERCETIN
     Indication: Product used for unknown indication
     Route: 065
  6. HISTAMINE [Suspect]
     Active Substance: HISTAMINE
     Indication: Product used for unknown indication
     Route: 065
  7. HISTAMINE [Suspect]
     Active Substance: HISTAMINE
     Indication: Product used for unknown indication
     Route: 065

REACTIONS (2)
  - Thirst [Unknown]
  - Off label use [Unknown]
